FAERS Safety Report 5762997-7 (Version None)
Quarter: 2008Q2

REPORT INFORMATION
  Report Type: 
  Country: None (occurrence: None)
  Receive Date: 20080609
  Receipt Date: 20080606
  Transmission Date: 20081010
  Serious: Yes (Life-Threatening, Hospitalization, Other)
  Sender: FDA-Public Use
  Company Number: CA-ASTRAZENECA-2008UW09087

PATIENT
  Age: 63 Year
  Sex: Male

DRUGS (3)
  1. SYMBICORT [Suspect]
     Dosage: 200 UG ONCE
     Route: 055
  2. CRESTOR [Concomitant]
     Route: 048
  3. MICARDIS HCT [Concomitant]

REACTIONS (3)
  - HYPERSENSITIVITY [None]
  - SWELLING FACE [None]
  - THROAT TIGHTNESS [None]
